FAERS Safety Report 9651940 (Version 1)
Quarter: 2013Q4

REPORT INFORMATION
  Report Type: Spontaneous
  Country: US (occurrence: US)
  Receive Date: 20131029
  Receipt Date: 20131029
  Transmission Date: 20140711
  Serious: Yes (Hospitalization)
  Sender: FDA-Public Use
  Company Number: US-B.I. PHARMACEUTICALS,INC./RIDGEFIELD-2013-BI-33811BP

PATIENT
  Age: 85 Year
  Sex: Female
  Weight: 54 kg

DRUGS (1)
  1. COMBIVENT [Suspect]
     Indication: ASTHMA
     Dosage: STRENGTH: 18 MCG / 103 MCG; DAILY DOSE: 36 MCG/206 MCG
     Route: 055
     Dates: end: 201310

REACTIONS (3)
  - Cardiac failure congestive [Recovered/Resolved]
  - Bronchitis [Recovered/Resolved]
  - Off label use [Not Recovered/Not Resolved]
